FAERS Safety Report 6925040-X (Version None)
Quarter: 2010Q3

REPORT INFORMATION
  Report Type: 
  Country: None (occurrence: None)
  Receive Date: 20100810
  Receipt Date: 20100802
  Transmission Date: 20110219
  Serious: Yes (Hospitalization, Other)
  Sender: FDA-Public Use
  Company Number: 2010PL000043

PATIENT
  Age: 63 Year
  Sex: Female
  Weight: 83.9154 kg

DRUGS (16)
  1. LOTRONEX [Suspect]
     Indication: DIARRHOEA
     Dosage: 1.0 MG;BID
     Dates: start: 20060127, end: 20100401
  2. LOTRONEX [Suspect]
     Indication: IRRITABLE BOWEL SYNDROME
     Dosage: 1.0 MG;BID
     Dates: start: 20060127, end: 20100401
  3. ESTRATEST [Concomitant]
  4. LEVOXYL [Concomitant]
  5. ALTACE [Concomitant]
  6. ALPRAZOLAM [Concomitant]
  7. AMBIEN [Concomitant]
  8. MAXAIR [Concomitant]
  9. WELCHOL [Concomitant]
  10. PAMINE FORTE [Concomitant]
  11. PRAVACHOL [Concomitant]
  12. ANTARA (MICRONIZED) [Concomitant]
  13. LASIX [Concomitant]
  14. WELLBUTRIN [Concomitant]
  15. ASPIRIN [Concomitant]
  16. CLOPIDOGREL [Concomitant]

REACTIONS (4)
  - CHOLECYSTECTOMY [None]
  - COLITIS ISCHAEMIC [None]
  - CORONARY ARTERIAL STENT INSERTION [None]
  - KNEE ARTHROPLASTY [None]
